FAERS Safety Report 10976339 (Version 2)
Quarter: 2015Q2

REPORT INFORMATION
  Report Type: Spontaneous
  Country: US (occurrence: US)
  Receive Date: 20150401
  Receipt Date: 20150525
  Transmission Date: 20150821
  Serious: Yes (Other)
  Sender: FDA-Public Use
  Company Number: US-JNJFOC-20140117570

PATIENT
  Sex: Male

DRUGS (1)
  1. RISPERDAL [Suspect]
     Active Substance: RISPERIDONE
     Indication: BIPOLAR DISORDER
     Route: 048
     Dates: start: 2002, end: 2003

REACTIONS (9)
  - Tic [Unknown]
  - Abnormal weight gain [Unknown]
  - Nipple disorder [Unknown]
  - Movement disorder [Unknown]
  - Sexual dysfunction [Unknown]
  - Tardive dyskinesia [Unknown]
  - Gynaecomastia [Unknown]
  - Feeling abnormal [Unknown]
  - Emotional distress [Unknown]
